FAERS Safety Report 5004709-0 (Version None)
Quarter: 2006Q1

REPORT INFORMATION
  Report Type: 
  Country: None (occurrence: None)
  Receive Date: 20060321
  Receipt Date: 20060125
  Transmission Date: 20060701
  Serious: No
  Sender: FDA-Public Use
  Company Number: 2006US000088

PATIENT
  Age: 56 Year
  Sex: Female

DRUGS (5)
  1. VESICARE [Suspect]
     Indication: HYPERTONIC BLADDER
     Dosage: 5 MG UID/QD, ORAL
     Route: 048
     Dates: start: 20050101
  2. BONIVA [Concomitant]
  3. BACTRIM [Concomitant]
  4. PREMARIN [Concomitant]
  5. CALCIUM (CALCIUM) [Concomitant]

REACTIONS (1)
  - MUSCLE SPASMS [None]
